FAERS Safety Report 10014691 (Version 1)
Quarter: 2014Q1

REPORT INFORMATION
  Report Type: Report from Study
  Country: IN (occurrence: IN)
  Receive Date: 20140317
  Receipt Date: 20140317
  Transmission Date: 20141002
  Serious: Yes (Other)
  Sender: FDA-Public Use
  Company Number: PHHO2014IN003258

PATIENT
  Sex: 0

DRUGS (7)
  1. ACZ885 [Suspect]
     Indication: CARDIOVASCULAR EVENT PROPHYLAXIS
     Dosage: 300 MG, UNK
     Route: 058
     Dates: start: 20131125, end: 20140225
  2. TONACT [Suspect]
     Indication: MYOCARDIAL ISCHAEMIA
     Dosage: UNK
     Dates: start: 20091029
  3. TONACT [Suspect]
     Dosage: 10 MG, OD
     Route: 048
     Dates: start: 20131029, end: 20140302
  4. TELSARTAN H [Concomitant]
     Indication: HYPERTENSION
     Dosage: 80 MG, OD
     Route: 048
     Dates: start: 20131029
  5. MONOSPRIN [Concomitant]
     Indication: MYOCARDIAL ISCHAEMIA
     Dosage: 30 MG, OD
     Route: 048
     Dates: start: 20131029
  6. GEMER [Concomitant]
     Indication: DIABETES MELLITUS
     Dosage: 1 MG, BBF
     Route: 048
     Dates: start: 20051113
  7. AMTAS-AT [Concomitant]
     Indication: HYPERTENSION
     Dosage: OD
     Route: 048
     Dates: start: 20051113

REACTIONS (1)
  - Blood creatine phosphokinase increased [Not Recovered/Not Resolved]
